FAERS Safety Report 5309823-8 (Version None)
Quarter: 2007Q2

REPORT INFORMATION
  Report Type: 
  Country: None (occurrence: None)
  Receive Date: 20070427
  Receipt Date: 20070416
  Transmission Date: 20071010
  Serious: Yes (Hospitalization)
  Sender: FDA-Public Use
  Company Number: NL-ELI_LILLY_AND_COMPANY-NL200704003803

PATIENT
  Age: 41 Year
  Sex: Male
  Weight: 81 kg

DRUGS (5)
  1. SOMATROPIN [Suspect]
     Indication: GROWTH HORMONE DEFICIENCY
     Dosage: 0.1 MG, UNK
     Route: 058
     Dates: start: 19980101
  2. TESTIM [Concomitant]
     Indication: SECONDARY HYPOGONADISM
     Dosage: UNK, UNK
     Dates: start: 20050101
  3. MINRIN [Concomitant]
     Indication: DIABETES INSIPIDUS
     Dosage: UNK, UNK
     Dates: start: 19950101
  4. LEVOTHYROXINE SODIUM [Concomitant]
     Indication: SECONDARY HYPOTHYROIDISM
     Dosage: UNK, UNK
     Dates: start: 19950101
  5. HYDROCORTISON [Concomitant]
     Indication: SECONDARY ADRENOCORTICAL INSUFFICIENCY
     Dosage: UNK, UNK
     Dates: start: 19950101

REACTIONS (1)
  - SECONDARY ADRENOCORTICAL INSUFFICIENCY [None]
